FAERS Safety Report 16277111 (Version 1)
Quarter: 2019Q2

REPORT INFORMATION
  Report Type: Spontaneous
  Country: US (occurrence: US)
  Receive Date: 20190506
  Receipt Date: 20190506
  Transmission Date: 20190711
  Serious: No
  Sender: FDA-Public Use
  Company Number: US-PFIZER INC-2019171399

PATIENT
  Age: 59 Year
  Sex: Female

DRUGS (1)
  1. CELEBREX [Suspect]
     Active Substance: CELECOXIB
     Dosage: 50 MG, 2X/DAY
     Route: 048

REACTIONS (7)
  - Renal disorder [Unknown]
  - Wrong technique in product usage process [Unknown]
  - Headache [Unknown]
  - Gait disturbance [Unknown]
  - Abdominal pain upper [Unknown]
  - Autonomic nervous system imbalance [Unknown]
  - Blood pressure fluctuation [Unknown]
